FAERS Safety Report 5057458-7 (Version None)
Quarter: 2006Q3

REPORT INFORMATION
  Report Type: 
  Country: None (occurrence: None)
  Receive Date: 20060721
  Receipt Date: 20051012
  Transmission Date: 20061208
  Serious: No
  Sender: FDA-Public Use
  Company Number: US-GLAXOSMITHKLINE-A0577992A

PATIENT
  Age: 75 Year
  Sex: Female

DRUGS (5)
  1. AVANDIA [Suspect]
     Dosage: 4MG PER DAY
     Route: 048
     Dates: start: 20050901, end: 20051009
  2. AMARYL [Concomitant]
  3. HYZAAR [Concomitant]
  4. VASOTEC [Concomitant]
  5. ACTOS [Concomitant]

REACTIONS (5)
  - ABDOMINAL DISTENSION [None]
  - DIARRHOEA [None]
  - FLATULENCE [None]
  - INCREASED APPETITE [None]
  - POLLAKIURIA [None]
